FAERS Safety Report 8485174 (Version 4)
Quarter: 2012Q4

REPORT INFORMATION
  Report Type: 
  Country: ES (occurrence: ES)
  Receive Date: 20120330
  Receipt Date: 20121105
  Transmission Date: 20130627
  Serious: Yes (Life-Threatening, Hospitalization, Other)
  Sender: FDA-Public Use
  Company Number: PHHO2010ES19380

PATIENT
  Age: 75 Year
  Sex: Male
  Weight: 78 kg

DRUGS (11)
  1. ALISKIREN [Suspect]
     Indication: CARDIAC FAILURE ACUTE
     Route: 048
     Dates: start: 20101207, end: 20101220
  2. ALISKIREN [Suspect]
     Route: 048
     Dates: start: 20101221
  3. RAMIPRIL [Suspect]
     Indication: CARDIAC FAILURE CHRONIC
     Dosage: 2.5 mg, QD
     Route: 048
     Dates: start: 20101209, end: 20101225
  4. RAMIPRIL [Suspect]
     Dosage: 2.5 mg, QD
     Route: 048
     Dates: start: 20110129, end: 20110717
  5. DIGOXIN [Suspect]
  6. CARVEDILOL [Concomitant]
     Indication: CARDIAC FAILURE CHRONIC
     Dosage: 3.125 mg, BID
     Route: 048
     Dates: start: 20100910
  7. AMIODARONE [Concomitant]
     Indication: ATRIAL FIBRILLATION
     Dosage: 200 mg, QD
     Route: 048
     Dates: start: 20110129, end: 20110717
  8. FUROSEMIDE [Concomitant]
     Indication: CARDIAC FAILURE CHRONIC
     Dosage: 80 mg, QD
     Route: 048
     Dates: start: 20101224, end: 20101225
  9. FUROSEMIDE [Concomitant]
     Dosage: 60 mg, QD
     Route: 048
     Dates: start: 20110129, end: 20110717
  10. ACENOCOUMAROL [Concomitant]
     Indication: ATRIAL FIBRILLATION
     Dosage: 4 mg, QD
     Route: 048
     Dates: start: 20101227, end: 20101225
  11. ACENOCOUMAROL [Concomitant]
     Dosage: changeable dose
     Dates: start: 20110209

REACTIONS (15)
  - Cardiac failure congestive [Recovering/Resolving]
  - Hyperkalaemia [Recovered/Resolved]
  - Electrocardiogram T wave abnormal [Recovering/Resolving]
  - Renal failure chronic [Recovering/Resolving]
  - Concomitant disease progression [Recovering/Resolving]
  - Gastroenteritis [Recovering/Resolving]
  - Vomiting [Recovering/Resolving]
  - Malaise [Recovering/Resolving]
  - Diarrhoea [Recovering/Resolving]
  - Renal impairment [Recovering/Resolving]
  - Toxicity to various agents [Recovered/Resolved]
  - Hyperhidrosis [Unknown]
  - Acute coronary syndrome [Recovered/Resolved]
  - Chest pain [Recovered/Resolved]
  - Atrial fibrillation [Not Recovered/Not Resolved]
